FAERS Safety Report 24998881 (Version 2)
Quarter: 2025Q2

REPORT INFORMATION
  Report Type: Spontaneous
  Country: US (occurrence: US)
  Receive Date: 20250222
  Receipt Date: 20250510
  Transmission Date: 20250717
  Serious: No
  Sender: SANOFI AVENTIS
  Company Number: US-SA-2025SA041989

PATIENT
  Sex: Female

DRUGS (3)
  1. DUPIXENT [Suspect]
     Active Substance: DUPILUMAB
     Indication: Eczema
     Route: 058
     Dates: start: 202412, end: 202412
  2. DUPIXENT [Suspect]
     Active Substance: DUPILUMAB
     Dosage: 300 MG, QOW
     Route: 058
     Dates: start: 20241215
  3. CINACALCET [Concomitant]
     Active Substance: CINACALCET

REACTIONS (4)
  - Dizziness [Not Recovered/Not Resolved]
  - Eczema [Recovering/Resolving]
  - Sleep disorder due to a general medical condition [Recovering/Resolving]
  - Product dose omission in error [Unknown]
